FAERS Safety Report 5822695-8 (Version None)
Quarter: 2008Q3

REPORT INFORMATION
  Report Type: 
  Country: None (occurrence: None)
  Receive Date: 20080725
  Receipt Date: 20080724
  Transmission Date: 20090109
  Serious: Yes (Hospitalization)
  Sender: FDA-Public Use
  Company Number: SE-BRISTOL-MYERS SQUIBB COMPANY-14275614

PATIENT
  Age: 77 Year
  Sex: Male

DRUGS (10)
  1. HYDREA [Suspect]
     Indication: THROMBOCYTHAEMIA
     Route: 048
     Dates: start: 20080422, end: 20080627
  2. SIMVASTATIN [Concomitant]
  3. TERAZOSIN HCL [Concomitant]
  4. ISOPTIN [Concomitant]
  5. KALEORID [Concomitant]
  6. BETOLVEX [Concomitant]
  7. NORMORIX [Concomitant]
  8. ASPIRIN [Concomitant]
  9. PERSANTINE [Concomitant]
  10. ZOPICLONE [Concomitant]

REACTIONS (3)
  - BODY TEMPERATURE INCREASED [None]
  - C-REACTIVE PROTEIN INCREASED [None]
  - MALAISE [None]
